FAERS Safety Report 14126061 (Version 1)
Quarter: 2017Q4

REPORT INFORMATION
  Report Type: Spontaneous
  Country: CA (occurrence: CA)
  Receive Date: 20171025
  Receipt Date: 20171025
  Transmission Date: 20180321
  Serious: Yes (Other)
  Sender: FDA-Public Use
  Company Number: CA-ABBVIE-17P-028-2142738-00

PATIENT
  Age: 11 Year
  Sex: Female

DRUGS (4)
  1. METHYLPREDNISOLONE. [Suspect]
     Active Substance: METHYLPREDNISOLONE
     Indication: HASHIMOTO^S ENCEPHALOPATHY
     Route: 042
  2. RISPERIDONE. [Suspect]
     Active Substance: RISPERIDONE
     Indication: ACUTE PSYCHOSIS
     Route: 065
  3. LEVOTHYROXINE SODIUM. [Suspect]
     Active Substance: LEVOTHYROXINE SODIUM
     Indication: HASHIMOTO^S ENCEPHALOPATHY
     Route: 065
  4. VALPROIC ACID. [Suspect]
     Active Substance: VALPROIC ACID
     Indication: SEIZURE
     Route: 048

REACTIONS (8)
  - Thrombocytopenia [Recovered/Resolved]
  - Aggression [Unknown]
  - Therapeutic response decreased [Unknown]
  - Acute psychosis [Recovering/Resolving]
  - Hallucination [Unknown]
  - Cognitive disorder [Unknown]
  - Therapeutic response unexpected [Unknown]
  - Memory impairment [Unknown]
